FAERS Safety Report 23430632 (Version 1)
Quarter: 2024Q1

REPORT INFORMATION
  Report Type: Other
  Country: GB (occurrence: GB)
  Receive Date: 20240123
  Receipt Date: 20240123
  Transmission Date: 20240410
  Serious: Yes (Other)
  Sender: FDA-Public Use
  Company Number: None

PATIENT
  Age: 24 Year
  Sex: Female

DRUGS (4)
  1. PREDNISOLONE [Suspect]
     Active Substance: PREDNISOLONE
     Indication: Product used for unknown indication
     Dosage: 15 MILLIGRAM
     Route: 065
  2. HYRIMOZ [Suspect]
     Active Substance: ADALIMUMAB-ADAZ
     Indication: Crohn^s disease
     Dosage: 40 MILLIGRAM, ONCE A WEEK (40 MG, QW, MAINTENANCE DOSE)
     Route: 058
  3. HYRIMOZ [Suspect]
     Active Substance: ADALIMUMAB-ADAZ
     Dosage: 160 MILLIGRAM (160 MG, WEEK 0)
     Route: 058
     Dates: start: 20230915
  4. HYRIMOZ [Suspect]
     Active Substance: ADALIMUMAB-ADAZ
     Dosage: 80 MILLIGRAM (80 MG, WEEK 2)
     Route: 058

REACTIONS (11)
  - Fall [Unknown]
  - Pain in extremity [Unknown]
  - Alopecia [Unknown]
  - Sneezing [None]
  - Nasopharyngitis [Unknown]
  - Vertigo positional [None]
  - Injection site erythema [Unknown]
  - Dizziness [Unknown]
  - Inappropriate schedule of product administration [Unknown]
  - Product dose omission issue [Unknown]
  - Lower respiratory tract infection [Unknown]
